FAERS Safety Report 9832679 (Version 1)
Quarter: 2014Q1

REPORT INFORMATION
  Report Type: Report from Study
  Country: US (occurrence: US)
  Receive Date: 20140121
  Receipt Date: 20140121
  Transmission Date: 20141002
  Serious: Yes (Other)
  Sender: FDA-Public Use
  Company Number: US-ABBVIE-14P-163-1188827-00

PATIENT
  Sex: Male
  Weight: 87.17 kg

DRUGS (4)
  1. HUMIRA [Suspect]
     Indication: ANKYLOSING SPONDYLITIS
     Dates: start: 2005, end: 201401
  2. HUMIRA [Suspect]
  3. ETODOLAC [Concomitant]
     Indication: ANKYLOSING SPONDYLITIS
  4. NEXIUM [Concomitant]
     Indication: GASTROOESOPHAGEAL REFLUX DISEASE

REACTIONS (7)
  - Benign prostatic hyperplasia [Recovered/Resolved]
  - Urethral obstruction [Recovered/Resolved]
  - Urinary retention [Recovered/Resolved]
  - Hypertension [Not Recovered/Not Resolved]
  - Blood cholesterol increased [Not Recovered/Not Resolved]
  - Restless legs syndrome [Not Recovered/Not Resolved]
  - Influenza [Recovered/Resolved]
